FAERS Safety Report 20483616 (Version 2)
Quarter: 2022Q2

REPORT INFORMATION
  Report Type: Spontaneous
  Country: US (occurrence: US)
  Receive Date: 20220217
  Receipt Date: 20220512
  Transmission Date: 20220721
  Serious: Yes (Hospitalization, Other)
  Sender: FDA-Public Use
  Company Number: US-NOVOPROD-891342

PATIENT
  Age: 73 Year
  Sex: Male
  Weight: 95.238 kg

DRUGS (5)
  1. OZEMPIC [Suspect]
     Active Substance: SEMAGLUTIDE
     Indication: Type 2 diabetes mellitus
     Dosage: 0.5
     Route: 058
     Dates: start: 20200922
  2. MELATONIN [Concomitant]
     Active Substance: MELATONIN
     Indication: Product used for unknown indication
  3. ASCORBIC ACID [Concomitant]
     Active Substance: ASCORBIC ACID
     Indication: Product used for unknown indication
     Dosage: 1000
  4. VITAMIN D3 [Concomitant]
     Active Substance: CHOLECALCIFEROL
     Indication: Product used for unknown indication
     Dosage: 700
  5. LORATADINE [Concomitant]
     Active Substance: LORATADINE
     Indication: Product used for unknown indication
     Dosage: 700

REACTIONS (6)
  - COVID-19 [Recovered/Resolved]
  - Pneumonia [Unknown]
  - Blood glucose increased [Recovered/Resolved]
  - Pollakiuria [Not Recovered/Not Resolved]
  - Pruritus [Unknown]
  - Vitamin D increased [Unknown]

NARRATIVE: CASE EVENT DATE: 20211101
